FAERS Safety Report 17408090 (Version 1)
Quarter: 2020Q1

REPORT INFORMATION
  Report Type: Report from Study
  Country: FR (occurrence: FR)
  Receive Date: 20200212
  Receipt Date: 20200212
  Transmission Date: 20200409
  Serious: Yes (Other)
  Sender: FDA-Public Use
  Company Number: FR-ROCHE-2541179

PATIENT
  Age: 51 Year
  Sex: Male

DRUGS (1)
  1. VEMURAFENIB. [Suspect]
     Active Substance: VEMURAFENIB
     Indication: NEPHROBLASTOMA
     Route: 065
     Dates: start: 201708

REACTIONS (1)
  - Toxic skin eruption [Unknown]
